FAERS Safety Report 5083410-1 (Version None)
Quarter: 2006Q3

REPORT INFORMATION
  Report Type: 
  Country: None (occurrence: None)
  Receive Date: 20060818
  Receipt Date: 20060808
  Transmission Date: 20061208
  Serious: Yes (Hospitalization)
  Sender: FDA-Public Use
  Company Number: PHEH2006US10180

PATIENT
  Age: 85 Year
  Sex: Female
  Weight: 61.678 kg

DRUGS (10)
  1. LOTREL [Suspect]
     Indication: HYPERTENSION
     Dosage: 5/10 MG, BID
     Route: 048
     Dates: start: 20020930, end: 20060803
  2. K-DUR 10 [Concomitant]
     Dosage: 20 MEQ, BID
     Route: 048
  3. SYNTHROID [Concomitant]
     Dosage: 125 UG, QD
     Route: 048
  4. PRAVACHOL [Concomitant]
     Dosage: 80 MG, QHS
     Route: 048
  5. TAGAMET [Concomitant]
     Dosage: 400 MG, BID
     Route: 048
  6. LASIX [Concomitant]
     Dosage: 40 MG, QD
     Route: 048
  7. PREDNISONE [Concomitant]
     Dosage: 10 MG, QD
     Route: 048
  8. CLINORIL [Concomitant]
     Dosage: 200 MG, BID
  9. PENTASA [Concomitant]
     Dosage: 1000 MG, QID
     Route: 048
  10. PREMARIN [Concomitant]
     Dosage: 0.625 UNK, QD
     Route: 048

REACTIONS (2)
  - CELLULITIS [None]
  - PITTING OEDEMA [None]
